FAERS Safety Report 21439016 (Version 1)
Quarter: 2022Q4

REPORT INFORMATION
  Report Type: Spontaneous
  Country: RU (occurrence: None)
  Receive Date: 20221011
  Receipt Date: 20221011
  Transmission Date: 20230112
  Serious: Yes (Other)
  Sender: FDA-Public Use
  Company Number: 2022A339520

PATIENT
  Age: 40 Year
  Sex: Male

DRUGS (6)
  1. DAPAGLIFLOZIN [Suspect]
     Active Substance: DAPAGLIFLOZIN
     Indication: Cardiac failure congestive
     Route: 048
  2. SACUBITRIL\VALSARTAN [Concomitant]
     Active Substance: SACUBITRIL\VALSARTAN
  3. VALSARTAN [Concomitant]
     Active Substance: VALSARTAN
  4. SACUBITRIL [Concomitant]
     Active Substance: SACUBITRIL
  5. VEINOTONIC [Concomitant]
  6. WARFARIN [Concomitant]
     Active Substance: WARFARIN

REACTIONS (7)
  - COVID-19 [Recovered/Resolved]
  - Ejection fraction decreased [Unknown]
  - Fluid retention [Unknown]
  - Genital tract inflammation [Unknown]
  - Genital erythema [Unknown]
  - Pruritus genital [Unknown]
  - Intentional product misuse [Unknown]
